FAERS Safety Report 7785876-2 (Version None)
Quarter: 2011Q3

REPORT INFORMATION
  Report Type: 
  Country: None (occurrence: None)
  Receive Date: 20110929
  Receipt Date: 20110921
  Transmission Date: 20111222
  Serious: Yes (Hospitalization, Other)
  Sender: FDA-Public Use
  Company Number: US-BAYER-201025631NA

PATIENT
  Age: 15 Year
  Sex: Female
  Weight: 59.87 kg

DRUGS (14)
  1. YAZ [Suspect]
     Indication: PREMENSTRUAL SYNDROME
  2. YAZ [Suspect]
     Indication: CONTRACEPTION
     Route: 048
     Dates: start: 20070901, end: 20100101
  3. BELLADONNA ALKALOIDS [Concomitant]
     Dosage: UNK
     Dates: start: 20070101
  4. TRAMADOL [Concomitant]
     Dosage: UNK
     Dates: start: 20080101
  5. IBUPROFEN [Concomitant]
     Dosage: UNK UNK, PRN
     Dates: start: 20050101
  6. PREDNISONE [Concomitant]
     Dosage: UNK
     Dates: start: 20080201
  7. SINGULAIR [Concomitant]
     Dosage: UNK
     Dates: start: 20060701
  8. ZITHROMAX [Concomitant]
     Dosage: UNK
     Dates: start: 20060701
  9. YASMIN [Suspect]
     Indication: CONTRACEPTION
     Route: 048
     Dates: start: 20060501, end: 20070901
  10. YASMIN [Suspect]
     Indication: PREMENSTRUAL SYNDROME
  11. AMOXICILLIN [Concomitant]
     Dosage: UNK
     Dates: start: 20070101
  12. HYOSCYAMINE [Concomitant]
     Dosage: UNK
     Dates: start: 20070101
  13. PAROXETINE HCL [Concomitant]
     Dosage: UNK
     Dates: start: 20080101
  14. ANTITHROMBOTIC AGENTS [Concomitant]
     Indication: PULMONARY EMBOLISM

REACTIONS (9)
  - CHEST PAIN [None]
  - APPENDICITIS [None]
  - ABDOMINAL PAIN [None]
  - DEPRESSION [None]
  - GALLBLADDER DISORDER [None]
  - PULMONARY EMBOLISM [None]
  - THROMBOPHLEBITIS [None]
  - OEDEMA PERIPHERAL [None]
  - CHOLECYSTITIS CHRONIC [None]
